FAERS Safety Report 7606271-2 (Version None)
Quarter: 2011Q3

REPORT INFORMATION
  Report Type: 
  Country: None (occurrence: None)
  Receive Date: 20110705
  Receipt Date: 20110620
  Transmission Date: 20111222
  Serious: Yes (Other)
  Sender: FDA-Public Use
  Company Number: 2011MA007773

PATIENT
  Age: 63 Year
  Sex: Male

DRUGS (5)
  1. FERROUS SULFATE TAB [Suspect]
     Indication: ANAEMIA
  2. ESCITALOPRAM [Concomitant]
  3. FUROSEMIDE [Concomitant]
  4. METOPROLOL TARTRATE [Concomitant]
  5. OXALATE [Concomitant]

REACTIONS (1)
  - GASTROINTESTINAL TRACT MUCOSAL PIGMENTATION [None]
